FAERS Safety Report 5885318-8 (Version None)
Quarter: 2008Q3

REPORT INFORMATION
  Report Type: 
  Country: None (occurrence: None)
  Receive Date: 20080916
  Receipt Date: 20080904
  Transmission Date: 20090109
  Serious: Yes (Other)
  Sender: FDA-Public Use
  Company Number: JP-PFIZER INC-2008073156

PATIENT
  Age: 38 Year
  Sex: Male

DRUGS (7)
  1. CHANTIX [Suspect]
     Indication: SMOKING CESSATION THERAPY
     Dosage: DAILY DOSE:1MG
     Route: 048
     Dates: start: 20080801
  2. OTHER NERVOUS SYSTEM DRUGS [Concomitant]
     Indication: MENTAL DISORDER
  3. ZYPREXA [Concomitant]
  4. PAXIL [Concomitant]
  5. DEPAS [Concomitant]
  6. AMOBAN [Concomitant]
  7. ROHYPNOL [Concomitant]

REACTIONS (2)
  - INCORRECT DOSE ADMINISTERED [None]
  - MANIA [None]
